FAERS Safety Report 9535972 (Version 1)
Quarter: 2013Q2

REPORT INFORMATION
  Report Type: Spontaneous
  Country: US (occurrence: None)
  Receive Date: 20130507
  Receipt Date: 20130507
  Transmission Date: 20140414
  Serious: Yes (Other)
  Sender: FDA-Public Use
  Company Number: PHEH2013US004475

PATIENT
  Age: 58 Year
  Sex: Female
  Weight: 88.4 kg

DRUGS (16)
  1. AFINITOR [Suspect]
     Route: 048
  2. PANTOPRAZOLE [Concomitant]
  3. PREDNISONE [Concomitant]
  4. TAMOXIFEN [Concomitant]
  5. NITROSTAT (GLYCERYL TRINITRATE) [Concomitant]
  6. RESTASIS (CICLOSPORIN) [Concomitant]
  7. VICODIN (HYDROCODONE BITARTRATE, PARACETAMOL) [Concomitant]
  8. CALCIUM [Concomitant]
  9. SIMVASTATIN [Concomitant]
  10. PLAVIX (CLOPIDOGREL BISULFATE) [Concomitant]
  11. LISINOPRIL [Concomitant]
  12. HYDROCHLOROTH (HYDROCHLOROTHIAZIDE) [Concomitant]
  13. COREG (CARVEDILOL) [Concomitant]
  14. ASPIRIN LOW (ACETYLSALICYLIC ACID) [Concomitant]
  15. SPIRIVA (TIOTROPIUM BROMIDE) (TIOTROPIUM BROMIDE) [Concomitant]
  16. SYMBICORT [Concomitant]

REACTIONS (5)
  - Contusion [None]
  - White blood cell count decreased [None]
  - Platelet count decreased [None]
  - Epistaxis [None]
  - Diarrhoea [None]
